FAERS Safety Report 11710626 (Version 2)
Quarter: 2015Q4

REPORT INFORMATION
  Report Type: Spontaneous
  Country: US (occurrence: US)
  Receive Date: 20151104
  Receipt Date: 20151110
  Transmission Date: 20160304
  Serious: No
  Sender: FDA-Public Use
  Company Number: US-ELI_LILLY_AND_COMPANY-US201106002700

PATIENT
  Sex: Female

DRUGS (3)
  1. OXYGEN. [Concomitant]
     Active Substance: OXYGEN
  2. FORTEO [Suspect]
     Active Substance: TERIPARATIDE
     Indication: OSTEOPOROSIS POSTMENOPAUSAL
     Dosage: 20 UG, UNKNOWN
     Route: 065
  3. FORTEO [Suspect]
     Active Substance: TERIPARATIDE
     Dosage: 20 UG, UNKNOWN
     Route: 065

REACTIONS (18)
  - Stress [Unknown]
  - Blood calcium increased [Unknown]
  - Headache [Unknown]
  - Incorrect product storage [Unknown]
  - Malaise [Not Recovered/Not Resolved]
  - Neuralgia [Unknown]
  - Ocular hyperaemia [Unknown]
  - Peripheral swelling [Unknown]
  - Fatigue [Unknown]
  - Myalgia [Unknown]
  - Urine calcium increased [Unknown]
  - Nephrolithiasis [Unknown]
  - Eye swelling [Unknown]
  - Arthralgia [Unknown]
  - Hyperparathyroidism [Unknown]
  - Gastrooesophageal reflux disease [Unknown]
  - Palpitations [Unknown]
  - Injury [Unknown]
